FAERS Safety Report 8230477-5 (Version None)
Quarter: 2012Q1

REPORT INFORMATION
  Report Type: 
  Country: None (occurrence: None)
  Receive Date: 20120320
  Receipt Date: 20120305
  Transmission Date: 20120608
  Serious: Yes (Hospitalization)
  Sender: FDA-Public Use
  Company Number: 2012-000953

PATIENT
  Age: 64 Year
  Sex: Female

DRUGS (3)
  1. DIDRONEL [Suspect]
     Indication: OSTEOPOROSIS
     Dosage: ORAL
     Route: 048
     Dates: start: 19900101, end: 19950101
  2. ALENDRONATE SODIUM [Suspect]
     Indication: OSTEOPOROSIS
     Dosage: 70 M WEEKLY, ORAL
     Route: 048
     Dates: start: 19950101, end: 20000101
  3. ALENDRONATE SODIUM [Suspect]
     Indication: OSTEOPOROSIS
     Dosage: 70 M WEEKLY, ORAL
     Route: 048
     Dates: start: 20000101, end: 20050101

REACTIONS (14)
  - NO THERAPEUTIC RESPONSE [None]
  - LUMBAR VERTEBRAL FRACTURE [None]
  - BONE PAIN [None]
  - OSTEOCALCIN DECREASED [None]
  - PATHOLOGICAL FRACTURE [None]
  - GAIT DISTURBANCE [None]
  - DYSSTASIA [None]
  - BONE DENSITY DECREASED [None]
  - ANAPHYLACTIC REACTION [None]
  - FEMUR FRACTURE [None]
  - STRESS FRACTURE [None]
  - MYELOFIBROSIS [None]
  - BLOOD PARATHYROID HORMONE INCREASED [None]
  - BLOOD 25-HYDROXYCHOLECALCIFEROL DECREASED [None]
